FAERS Safety Report 10477738 (Version 2)
Quarter: 2014Q4

REPORT INFORMATION
  Report Type: Spontaneous
  Country: FR (occurrence: FR)
  Receive Date: 20140926
  Receipt Date: 20141111
  Transmission Date: 20150528
  Serious: Yes (Death, Hospitalization)
  Sender: FDA-Public Use
  Company Number: FR-ASPEN PHARMA TRADING LIMITED US-AG-2014-005484

PATIENT
  Age: 70 Year
  Sex: Male

DRUGS (3)
  1. ARIXTRA [Suspect]
     Active Substance: FONDAPARINUX SODIUM
     Indication: PRODUCT USED FOR UNKNOWN INDICATION
     Dosage: 2.5MG/0.5ML
     Route: 058
     Dates: end: 201312
  2. NEXAVAR [Interacting]
     Active Substance: SORAFENIB
     Indication: HEPATOCELLULAR CARCINOMA
     Route: 065
  3. VOGALENE [Interacting]
     Active Substance: METOPIMAZINE
     Indication: PRODUCT USED FOR UNKNOWN INDICATION
     Route: 065

REACTIONS (3)
  - Death [Fatal]
  - Haematoma [Not Recovered/Not Resolved]
  - Fall [None]

NARRATIVE: CASE EVENT DATE: 20130928
